FAERS Safety Report 7941161-7 (Version None)
Quarter: 2011Q4

REPORT INFORMATION
  Report Type: 
  Country: None (occurrence: None)
  Receive Date: 20111128
  Receipt Date: 20111118
  Transmission Date: 20120403
  Serious: Yes (Hospitalization)
  Sender: FDA-Public Use
  Company Number: US-JNJFOC-20111109409

PATIENT
  Sex: Female
  Weight: 68.04 kg

DRUGS (8)
  1. INVEGA SUSTENNA [Suspect]
     Indication: BIPOLAR DISORDER
     Route: 030
     Dates: start: 20070101, end: 20070101
  2. INVEGA SUSTENNA [Suspect]
     Route: 030
     Dates: start: 20110101, end: 20110101
  3. INVEGA SUSTENNA [Suspect]
     Route: 030
     Dates: start: 19990101, end: 19990101
  4. UNKNOWN MEDICATION [Concomitant]
     Indication: SCHIZOPHRENIA
     Route: 048
  5. INVEGA SUSTENNA [Suspect]
     Route: 030
     Dates: start: 20070101, end: 20070101
  6. INVEGA SUSTENNA [Suspect]
     Route: 030
     Dates: start: 19990101, end: 19990101
  7. UNKNOWN MEDICATION [Concomitant]
     Indication: BIPOLAR DISORDER
     Route: 048
  8. INVEGA SUSTENNA [Suspect]
     Indication: SCHIZOPHRENIA
     Route: 030
     Dates: start: 20110101, end: 20110101

REACTIONS (6)
  - BONE PAIN [None]
  - PRODUCT QUALITY ISSUE [None]
  - ADVERSE EVENT [None]
  - WEIGHT DECREASED [None]
  - DRUG DOSE OMISSION [None]
  - JOINT STIFFNESS [None]
